FAERS Safety Report 9741985 (Version 1)
Quarter: 2013Q4

REPORT INFORMATION
  Report Type: Spontaneous
  Country: US (occurrence: US)
  Receive Date: 20131210
  Receipt Date: 20131210
  Transmission Date: 20140711
  Serious: No
  Sender: FDA-Public Use
  Company Number: US-PFIZER INC-2013349809

PATIENT
  Sex: Female

DRUGS (5)
  1. FLAGYL [Suspect]
  2. MORPHINE SULFATE [Suspect]
  3. MEFOXIN [Suspect]
  4. CEFOXITIN [Suspect]
  5. ZOFRAN [Suspect]

REACTIONS (1)
  - Drug hypersensitivity [Unknown]
